FAERS Safety Report 21052388 (Version 1)
Quarter: 2022Q3

REPORT INFORMATION
  Report Type: Spontaneous
  Country: US (occurrence: None)
  Receive Date: 20220706
  Receipt Date: 20220706
  Transmission Date: 20221027
  Serious: Yes (Disabling)
  Sender: FDA-Public Use
  Company Number: None

PATIENT
  Age: 63 Year
  Sex: Male
  Weight: 80.1 kg

DRUGS (1)
  1. ZONISAMIDE [Suspect]
     Active Substance: ZONISAMIDE
     Indication: Partial seizures
     Dosage: OTHER QUANTITY : 2 TABLET(S);?FREQUENCY : AS NEEDED;?
     Route: 048
     Dates: start: 20220107, end: 20220203

REACTIONS (7)
  - Tinnitus [None]
  - Headache [None]
  - Photophobia [None]
  - Hyperacusis [None]
  - Partial seizures [None]
  - Neuropathy peripheral [None]
  - Recalled product administered [None]

NARRATIVE: CASE EVENT DATE: 20220112
